FAERS Safety Report 5419245-7 (Version None)
Quarter: 2007Q3

REPORT INFORMATION
  Report Type: 
  Country: None (occurrence: None)
  Receive Date: 20070816
  Receipt Date: 20070816
  Transmission Date: 20080115
  Serious: Yes (Hospitalization)
  Sender: FDA-Public Use
  Company Number: None

PATIENT
  Age: 92 Year
  Sex: Male
  Weight: 71.7 kg

DRUGS (1)
  1. FLOMAX [Suspect]
     Indication: BENIGN PROSTATIC HYPERPLASIA
     Dosage: 0.4 MG DAILY PO
     Route: 048
     Dates: start: 20070725, end: 20070801

REACTIONS (3)
  - PROSTATIC DISORDER [None]
  - RASH ERYTHEMATOUS [None]
  - RASH PRURITIC [None]
